FAERS Safety Report 5026702-4 (Version None)
Quarter: 2006Q2

REPORT INFORMATION
  Report Type: 
  Country: None (occurrence: None)
  Receive Date: 20060615
  Receipt Date: 20060609
  Transmission Date: 20061013
  Serious: Yes (Hospitalization, Disabling)
  Sender: FDA-Public Use
  Company Number: FR-JNJFOC-20060601958

PATIENT
  Age: 79 Year
  Sex: Female

DRUGS (1)
  1. OFLOCET [Suspect]
     Indication: URINARY TRACT INFECTION
     Route: 048
     Dates: start: 20051001

REACTIONS (5)
  - ARTHRALGIA [None]
  - CYST RUPTURE [None]
  - DEPRESSION [None]
  - TENDON RUPTURE [None]
  - TENDONITIS [None]
